FAERS Safety Report 7575582-1 (Version None)
Quarter: 2011Q2

REPORT INFORMATION
  Report Type: 
  Country: None (occurrence: None)
  Receive Date: 20110627
  Receipt Date: 20110616
  Transmission Date: 20111010
  Serious: Yes (Hospitalization)
  Sender: FDA-Public Use
  Company Number: PHHY2011NO53358

PATIENT
  Age: 63 Year
  Sex: Male

DRUGS (8)
  1. CRESTOR [Concomitant]
     Route: 048
  2. PLENDIL [Concomitant]
     Route: 048
  3. LEVOTHYROXINE SODIUM [Concomitant]
     Dosage: 0,10 AND 0,15 MG EVERY OTHER DAY
     Route: 048
  4. LOSARTAN POTASSIUM/HYDROCHLOROTHIAZIDE [Suspect]
     Route: 048
     Dates: start: 20110101, end: 20110506
  5. INSULIN HUMAN [Concomitant]
     Indication: DIABETES MELLITUS
     Dosage: 28 UNIT EVENING
     Route: 058
  6. ASPIRIN [Concomitant]
     Route: 048
  7. DIPENTUM [Concomitant]
     Route: 048
  8. AZATHIOPRINE SODIUM [Concomitant]
     Route: 048
     Dates: end: 20110525

REACTIONS (1)
  - COLITIS ULCERATIVE [None]
